FAERS Safety Report 7617349-1 (Version None)
Quarter: 2011Q3

REPORT INFORMATION
  Report Type: 
  Country: None (occurrence: None)
  Receive Date: 20110718
  Receipt Date: 20110714
  Transmission Date: 20111222
  Serious: Yes (Death, Other)
  Sender: FDA-Public Use
  Company Number: JP-SANOFI-AVENTIS-2011SA012116

PATIENT
  Age: 78 Year
  Sex: Male
  Weight: 74.5 kg

DRUGS (2)
  1. ENOXAPARIN SODIUM [Suspect]
     Indication: ABDOMINAL OPERATION
     Route: 058
     Dates: start: 20110127, end: 20110127
  2. CEFOPERAZONE SODIUM [Concomitant]
     Indication: CHOLELITHIASIS
     Route: 065
     Dates: start: 20110126, end: 20110208

REACTIONS (10)
  - SUBCUTANEOUS HAEMATOMA [None]
  - HAEMATOCRIT DECREASED [None]
  - PLATELET COUNT DECREASED [None]
  - MYOCARDIAL ISCHAEMIA [None]
  - RED BLOOD CELL COUNT DECREASED [None]
  - CARDIAC ARREST [None]
  - POST PROCEDURAL HAEMORRHAGE [None]
  - POST PROCEDURAL HAEMATOMA [None]
  - HAEMOGLOBIN DECREASED [None]
  - POSTOPERATIVE WOUND INFECTION [None]
